FAERS Safety Report 9892886 (Version 2)
Quarter: 2014Q1

REPORT INFORMATION
  Report Type: Spontaneous
  Country: US (occurrence: US)
  Receive Date: 20140213
  Receipt Date: 20140224
  Transmission Date: 20141002
  Serious: No
  Sender: FDA-Public Use
  Company Number: US-009507513-1402USA005292

PATIENT
  Sex: 0

DRUGS (2)
  1. REBETOL [Suspect]
     Indication: CHRONIC HEPATITIS C
     Route: 048
  2. INTERFERON ALFA [Suspect]
     Indication: CHRONIC HEPATITIS C

REACTIONS (1)
  - Anaemia [Unknown]
